FAERS Safety Report 9058651 (Version 1)
Quarter: 2013Q1

REPORT INFORMATION
  Report Type: Spontaneous
  Country: US (occurrence: US)
  Receive Date: 20130204
  Receipt Date: 20130204
  Transmission Date: 20140127
  Serious: No
  Sender: FDA-Public Use
  Company Number: US-GLAXOSMITHKLINE-A0996697A

PATIENT
  Age: 63 Year
  Sex: Male

DRUGS (4)
  1. HORIZANT [Suspect]
     Indication: NEUROPATHY PERIPHERAL
     Dosage: 600MG PER DAY
     Route: 048
     Dates: start: 201209
  2. LISINOPRIL [Concomitant]
  3. ATENOLOL [Concomitant]
  4. BABY ASPIRIN [Concomitant]

REACTIONS (3)
  - Dizziness [Recovered/Resolved]
  - Sedation [Recovered/Resolved]
  - Drug ineffective [Unknown]
